FAERS Safety Report 10369262 (Version 1)
Quarter: 2014Q3

REPORT INFORMATION
  Report Type: Spontaneous
  Country: DK (occurrence: DK)
  Receive Date: 20140807
  Receipt Date: 20140807
  Transmission Date: 20150326
  Serious: Yes (Other)
  Sender: FDA-Public Use
  Company Number: DK-FRI-1000069718

PATIENT
  Age: 71 Year
  Sex: Male

DRUGS (1)
  1. CITALOPRAM [Suspect]
     Active Substance: CITALOPRAM HYDROBROMIDE
     Indication: DEPRESSION
     Route: 048
     Dates: start: 201301, end: 20130220

REACTIONS (10)
  - Tremor [Recovering/Resolving]
  - Gait disturbance [Recovering/Resolving]
  - Pollakiuria [Recovering/Resolving]
  - Serotonin syndrome [Recovering/Resolving]
  - General physical condition abnormal [Recovering/Resolving]
  - Musculoskeletal stiffness [Recovering/Resolving]
  - Movement disorder [Recovering/Resolving]
  - Confusional state [Recovering/Resolving]
  - Cognitive disorder [Recovering/Resolving]
  - Masked facies [Recovering/Resolving]

NARRATIVE: CASE EVENT DATE: 20130208
